FAERS Safety Report 7919440-9 (Version None)
Quarter: 2011Q4

REPORT INFORMATION
  Report Type: 
  Country: None (occurrence: None)
  Receive Date: 20111116
  Receipt Date: 20111116
  Transmission Date: 20120403
  Serious: Yes (Life-Threatening)
  Sender: FDA-Public Use
  Company Number: None

PATIENT
  Sex: Female
  Weight: 82.3 kg

DRUGS (4)
  1. PALONOSETRON [Concomitant]
  2. TAXOTERE [Suspect]
     Indication: BREAST CANCER
     Dosage: 140 MG Q 3 WEEKS IVPB
     Route: 042
     Dates: start: 20111021
  3. GOSERELIN ACETATE [Concomitant]
  4. DEXAMETHASONE [Concomitant]

REACTIONS (6)
  - TACHYCARDIA [None]
  - PROCEDURAL HYPOTENSION [None]
  - ABDOMINAL PAIN [None]
  - PYREXIA [None]
  - NECROTISING COLITIS [None]
  - CLOSTRIDIUM DIFFICILE SEPSIS [None]
